FAERS Safety Report 6517024-0 (Version None)
Quarter: 2009Q4

REPORT INFORMATION
  Report Type: 
  Country: None (occurrence: None)
  Receive Date: 20091223
  Receipt Date: 20091215
  Transmission Date: 20100525
  Serious: Yes (Hospitalization)
  Sender: FDA-Public Use
  Company Number: GXKR2009GB13499

PATIENT
  Age: 16 Month
  Sex: Female

DRUGS (5)
  1. LEVETIRACETAM (NGX) [Suspect]
     Dosage: 60 MG/KG, QD
     Route: 065
  2. LEVETIRACETAM (NGX) [Suspect]
     Dosage: 30 MG/KG, UNK
  3. CLONAZEPAM (NGX) [Suspect]
     Route: 065
  4. VIGABATRIN [Suspect]
     Indication: CONVULSION
     Dosage: 120 MG/KG, UNK
  5. CLOBAZAM [Concomitant]
     Dosage: 400 MG/KG, QD
     Route: 065

REACTIONS (2)
  - BLISTER [None]
  - SWELLING FACE [None]
